FAERS Safety Report 11543063 (Version 1)
Quarter: 2015Q3

REPORT INFORMATION
  Report Type: Spontaneous
  Country: US (occurrence: US)
  Receive Date: 20150923
  Receipt Date: 20150923
  Transmission Date: 20151125
  Serious: Yes (Other)
  Sender: FDA-Public Use
  Company Number: US-BAYER-2015-428983

PATIENT
  Sex: Female

DRUGS (1)
  1. DR. SCHOLLS CORN REMOVERS [Suspect]
     Active Substance: SALICYLIC ACID
     Indication: DIABETIC FOOT
     Dosage: UNK
     Route: 061

REACTIONS (5)
  - Skin exfoliation [None]
  - Pain in extremity [Not Recovered/Not Resolved]
  - Skin haemorrhage [None]
  - Product use issue [None]
  - Haemorrhagic diathesis [None]
